FAERS Safety Report 12369078 (Version 2)
Quarter: 2016Q2

REPORT INFORMATION
  Report Type: Spontaneous
  Country: US (occurrence: US)
  Receive Date: 20160513
  Receipt Date: 20160527
  Transmission Date: 20160815
  Serious: Yes (Hospitalization)
  Sender: FDA-Public Use
  Company Number: US-VERTEX PHARMACEUTICALS-2016-003050

PATIENT
  Age: 34 Year
  Sex: Male

DRUGS (18)
  1. CYPROHEPTADINE. [Concomitant]
     Active Substance: CYPROHEPTADINE
  2. LEXAPRO [Concomitant]
     Active Substance: ESCITALOPRAM OXALATE
  3. NEXIUM [Concomitant]
     Active Substance: ESOMEPRAZOLE MAGNESIUM
  4. XOPENEX [Concomitant]
     Active Substance: LEVALBUTEROL HYDROCHLORIDE
  5. HYPERSAL [Concomitant]
  6. CAYSTON [Concomitant]
     Active Substance: AZTREONAM
  7. PREDNISONE. [Concomitant]
     Active Substance: PREDNISONE
  8. AQUADEKS [Concomitant]
     Active Substance: MINERALS\VITAMINS
  9. HUMALOG [Concomitant]
     Active Substance: INSULIN LISPRO
  10. WELLBUTRIN [Concomitant]
     Active Substance: BUPROPION HYDROCHLORIDE
  11. PULMOZYME [Concomitant]
     Active Substance: DORNASE ALFA
  12. ORKAMBI [Suspect]
     Active Substance: IVACAFTOR\LUMACAFTOR
     Indication: CYSTIC FIBROSIS
     Dosage: 400-250 MG, BID
     Route: 048
     Dates: start: 20150812
  13. CREON [Concomitant]
     Active Substance: PANCRELIPASE AMYLASE\PANCRELIPASE LIPASE\PANCRELIPASE PROTEASE
  14. SINGULAIR [Concomitant]
     Active Substance: MONTELUKAST SODIUM
  15. COLISTIMETHATE [Concomitant]
     Active Substance: COLISTIMETHATE SODIUM
  16. TRAZODONE [Concomitant]
     Active Substance: TRAZODONE HYDROCHLORIDE
  17. VITAMIN B3 [Concomitant]
     Active Substance: NIACIN
  18. LANTUS [Concomitant]
     Active Substance: INSULIN GLARGINE

REACTIONS (1)
  - Infective pulmonary exacerbation of cystic fibrosis [Recovered/Resolved]

NARRATIVE: CASE EVENT DATE: 20160425
